FAERS Safety Report 8407894 (Version 2)
Quarter: 2012Q4

REPORT INFORMATION
  Report Type: 
  Country: DE (occurrence: DE)
  Receive Date: 20120215
  Receipt Date: 20120912
  Transmission Date: 20130627
  Serious: Yes (Life-Threatening, Hospitalization)
  Sender: FDA-Public Use
  Company Number: DE-ROCHE-1022197

PATIENT
  Age: 55 Year
  Sex: Female
  Weight: 83 kg

DRUGS (10)
  1. ROACTEMRA [Suspect]
     Indication: RHEUMATOID ARTHRITIS
     Route: 042
     Dates: start: 20101214
  2. ROACTEMRA [Suspect]
     Route: 065
     Dates: start: 20110707
  3. ROACTEMRA [Suspect]
     Route: 065
     Dates: start: 20110809
  4. ROACTEMRA [Suspect]
     Route: 065
     Dates: start: 20110909
  5. ROACTEMRA [Suspect]
     Route: 065
     Dates: start: 20111012
  6. ARAVA [Concomitant]
     Indication: RHEUMATOID ARTHRITIS
     Route: 048
     Dates: start: 20101028
  7. ALENDRON [Concomitant]
     Indication: OSTEOPOROSIS
     Route: 065
  8. DEKRISTOL [Concomitant]
     Indication: OSTEOPOROSIS
     Route: 048
     Dates: start: 20100930
  9. DICLOFENAC [Concomitant]
     Route: 048
  10. DICLOFENAC [Concomitant]
     Route: 048

REACTIONS (8)
  - Septic shock [Recovered/Resolved]
  - Cardiac arrest [Recovered/Resolved]
  - Urosepsis [Recovered/Resolved]
  - Calculus urethral [Unknown]
  - Pyelonephritis [Unknown]
  - Deep vein thrombosis [Recovering/Resolving]
  - Cardiac infection [Unknown]
  - Respiratory failure [Recovered/Resolved]
